FAERS Safety Report 26105341 (Version 1)
Quarter: 2025Q4

REPORT INFORMATION
  Report Type: Other
  Country: EU (occurrence: EU)
  Receive Date: 20251201
  Receipt Date: 20251201
  Transmission Date: 20260117
  Serious: Yes (Hospitalization)
  Sender: Atnahs Healthcare
  Company Number: None

PATIENT

DRUGS (2)
  1. VALIUM [Suspect]
     Active Substance: DIAZEPAM
     Indication: Poisoning deliberate
     Dosage: 30 DOSAGE FORM (10 MG (30 SINGLE-USE TABLETS))
     Route: 048
     Dates: start: 20251026, end: 20251026
  2. BACLOFEN [Suspect]
     Active Substance: BACLOFEN
     Indication: Poisoning deliberate
     Dosage: 30 DOSAGE FORM (10 MG (30 SINGLE-USE TABLETS))
     Route: 048
     Dates: start: 20251026, end: 20251026

REACTIONS (2)
  - Coma [Recovered/Resolved]
  - Poisoning deliberate [Recovered/Resolved]

NARRATIVE: CASE EVENT DATE: 20251026
